FAERS Safety Report 6814980-8 (Version None)
Quarter: 2010Q3

REPORT INFORMATION
  Report Type: 
  Country: None (occurrence: None)
  Receive Date: 20100701
  Receipt Date: 20100701
  Transmission Date: 20110219
  Serious: Yes (Life-Threatening, Other)
  Sender: FDA-Public Use
  Company Number: None

PATIENT
  Sex: Female
  Weight: 47.6277 kg

DRUGS (2)
  1. FORTEO [Suspect]
     Indication: OSTEOPOROSIS
     Dosage: FORTEO 20 MG ONCE DAILY INJECTION
     Route: 058
  2. EVISTA [Suspect]
     Indication: OSTEOPOROSIS
     Dosage: EVISTA 60 MG DAILY ORAL
     Route: 048

REACTIONS (4)
  - APHASIA [None]
  - FAECAL INCONTINENCE [None]
  - PAIN IN EXTREMITY [None]
  - PRESYNCOPE [None]
